FAERS Safety Report 17814990 (Version 1)
Quarter: 2020Q2

REPORT INFORMATION
  Report Type: Spontaneous
  Country: PT (occurrence: PT)
  Receive Date: 20200522
  Receipt Date: 20200522
  Transmission Date: 20200714
  Serious: Yes (Other)
  Sender: FDA-Public Use
  Company Number: PT-HIKMA PHARMACEUTICALS USA INC.-PT-H14001-20-02475

PATIENT
  Sex: Female

DRUGS (5)
  1. LINEZOLIDE [Suspect]
     Active Substance: LINEZOLID
     Indication: ACUTE SINUSITIS
     Route: 065
  2. CEFTRIAXONE. [Suspect]
     Active Substance: CEFTRIAXONE
     Indication: ACUTE SINUSITIS
     Route: 065
  3. VANCOMYCIN [Suspect]
     Active Substance: VANCOMYCIN
     Indication: ACUTE SINUSITIS
     Route: 065
  4. MEROPENEM. [Suspect]
     Active Substance: MEROPENEM
     Indication: ACUTE SINUSITIS
     Route: 065
  5. METRONIDAZOLE. [Suspect]
     Active Substance: METRONIDAZOLE
     Indication: ACUTE SINUSITIS
     Route: 065

REACTIONS (1)
  - Hydrocephalus [Recovering/Resolving]
